FAERS Safety Report 5577299-1 (Version None)
Quarter: 2007Q4

REPORT INFORMATION
  Report Type: 
  Country: None (occurrence: None)
  Receive Date: 20071228
  Receipt Date: 20071217
  Transmission Date: 20080405
  Serious: Yes (Other)
  Sender: FDA-Public Use
  Company Number: GB-PFIZER INC-2007095169

PATIENT
  Sex: Female
  Weight: 75 kg

DRUGS (3)
  1. CHANTIX [Suspect]
     Indication: SMOKING CESSATION THERAPY
     Route: 048
     Dates: start: 20070618, end: 20070720
  2. PAROXETINE [Concomitant]
     Route: 048
  3. PREMARIN [Concomitant]
     Route: 048

REACTIONS (2)
  - DEPRESSION [None]
  - STRESS [None]
